FAERS Safety Report 7365866-4 (Version None)
Quarter: 2011Q1

REPORT INFORMATION
  Report Type: 
  Country: None (occurrence: None)
  Receive Date: 20110322
  Receipt Date: 20110314
  Transmission Date: 20110831
  Serious: Yes (Hospitalization)
  Sender: FDA-Public Use
  Company Number: US-US-EMD SERONO, INC.-7043358

PATIENT
  Sex: Female

DRUGS (3)
  1. REBIF [Suspect]
     Route: 058
     Dates: start: 20110101
  2. REBIF [Suspect]
     Indication: PRODUCT USED FOR UNKNOWN INDICATION
     Route: 058
     Dates: start: 20110204, end: 20110101
  3. ADVIL LIQUI-GELS [Concomitant]
     Indication: PREMEDICATION

REACTIONS (4)
  - OSTEONECROSIS [None]
  - INJECTION SITE ERYTHEMA [None]
  - ARTHRALGIA [None]
  - DEPRESSION [None]
